FAERS Safety Report 5540775-1 (Version None)
Quarter: 2007Q4

REPORT INFORMATION
  Report Type: 
  Country: None (occurrence: None)
  Receive Date: 20071129
  Receipt Date: 20070814
  Transmission Date: 20080405
  Serious: Yes (Other)
  Sender: FDA-Public Use
  Company Number: US200708003021

PATIENT
  Age: 36 Year
  Sex: Female

DRUGS (4)
  1. ZYPREXA [Suspect]
     Dosage: 5 MG, EACH EVENING,; 2.5 MG, AS NEEDED,
     Dates: start: 19990701, end: 20070626
  2. LEXAPRO [Concomitant]
  3. LORAZEPAM [Concomitant]
  4. ABILIFY [Concomitant]

REACTIONS (2)
  - TYPE 2 DIABETES MELLITUS [None]
  - WEIGHT INCREASED [None]
